FAERS Safety Report 17692696 (Version 1)
Quarter: 2020Q2

REPORT INFORMATION
  Report Type: Spontaneous
  Country: DE (occurrence: DE)
  Receive Date: 20200422
  Receipt Date: 20200422
  Transmission Date: 20200714
  Serious: Yes (Congenital Anomaly)
  Sender: FDA-Public Use
  Company Number: DE-TEVA-2020-DE-1223571

PATIENT
  Age: 0 Year
  Sex: Male
  Weight: 3.6 kg

DRUGS (2)
  1. ARIPIPRAZOL [Suspect]
     Active Substance: ARIPIPRAZOLE
     Indication: PSYCHOTIC DISORDER
     Dosage: 15 MILLIGRAM DAILY; 15 [MG/D ]
     Route: 064
  2. FOLSAURE [Concomitant]
     Active Substance: FOLIC ACID
     Indication: PROPHYLAXIS OF NEURAL TUBE DEFECT
     Route: 064

REACTIONS (3)
  - Cloacal exstrophy [Not Recovered/Not Resolved]
  - Epispadias [Not Recovered/Not Resolved]
  - Foetal exposure during pregnancy [Unknown]
